FAERS Safety Report 8954935 (Version 2)
Quarter: 2013Q1

REPORT INFORMATION
  Report Type: Spontaneous
  Country: US (occurrence: US)
  Receive Date: 20121210
  Receipt Date: 20130205
  Transmission Date: 20140127
  Serious: Yes (Other)
  Sender: FDA-Public Use
  Company Number: US-BAYER-2012-127182

PATIENT
  Age: 79 Year
  Sex: Male

DRUGS (7)
  1. AVELOX [Suspect]
     Indication: PNEUMONIA
     Dosage: 400 MG, QD
     Dates: start: 20121130
  2. MUCINEX [Concomitant]
  3. CHLORPHENIRAMINE W/HYDROCODONE [Concomitant]
  4. METFORMIN [Concomitant]
  5. ENALAPRIL [Concomitant]
  6. LOVASTATIN [Concomitant]
  7. CELEXA [Concomitant]

REACTIONS (3)
  - Hallucination [Not Recovered/Not Resolved]
  - Logorrhoea [Not Recovered/Not Resolved]
  - Restlessness [Not Recovered/Not Resolved]
